FAERS Safety Report 19865519 (Version 1)
Quarter: 2021Q3

REPORT INFORMATION
  Report Type: Spontaneous
  Country: US (occurrence: US)
  Receive Date: 20210921
  Receipt Date: 20210921
  Transmission Date: 20211014
  Serious: Yes (Death)
  Sender: FDA-Public Use
  Company Number: None

PATIENT
  Age: 64 Year
  Sex: Female
  Weight: 84 kg

DRUGS (2)
  1. TOCILIZUMAB (TOTAL 600 MG DOSE) [Suspect]
     Active Substance: TOCILIZUMAB
     Indication: COVID-19
     Route: 042
     Dates: start: 20210913, end: 20210913
  2. TOCILIZUMAB (TOTAL DOSE 600 MG) [Suspect]
     Active Substance: TOCILIZUMAB

REACTIONS (3)
  - Thrombosis [None]
  - Pulseless electrical activity [None]
  - Bradycardia [None]

NARRATIVE: CASE EVENT DATE: 20210918
